FAERS Safety Report 19156278 (Version 3)
Quarter: 2021Q2

REPORT INFORMATION
  Report Type: Report from Study
  Country: US (occurrence: US)
  Receive Date: 20210419
  Receipt Date: 20210629
  Transmission Date: 20210717
  Serious: Yes (Hospitalization)
  Sender: FDA-Public Use
  Company Number: US-EXELIXIS-CABO-21039406

PATIENT
  Sex: Male

DRUGS (40)
  1. PROCHLORPERAZINE. [Concomitant]
     Active Substance: PROCHLORPERAZINE
  2. ATORVASTATIN CALCIUM. [Concomitant]
     Active Substance: ATORVASTATIN CALCIUM
  3. VITAMIN D [Concomitant]
     Active Substance: VITAMIN D NOS
  4. ALPRAZOLAM. [Concomitant]
     Active Substance: ALPRAZOLAM
  5. DEXAMETHASONE. [Concomitant]
     Active Substance: DEXAMETHASONE
  6. OXCARBAZEPINE. [Concomitant]
     Active Substance: OXCARBAZEPINE
  7. ZONEGRAN [Concomitant]
     Active Substance: ZONISAMIDE
  8. ZONISAMIDE. [Concomitant]
     Active Substance: ZONISAMIDE
  9. IMODIUM A?D [Concomitant]
     Active Substance: LOPERAMIDE HYDROCHLORIDE
  10. AMLODIPINE [Concomitant]
     Active Substance: AMLODIPINE BESYLATE
  11. OXYCODONE HYDROCHLORIDE. [Concomitant]
     Active Substance: OXYCODONE HYDROCHLORIDE
  12. TRILEPTAL [Concomitant]
     Active Substance: OXCARBAZEPINE
  13. MAGIC SWIZZLE [Concomitant]
  14. CABOMETYX [Suspect]
     Active Substance: CABOZANTINIB S-MALATE
     Indication: RENAL CANCER
     Dosage: 20 MG, QD
     Route: 048
     Dates: start: 20201217
  15. CATAPRES [Concomitant]
     Active Substance: CLONIDINE HYDROCHLORIDE
  16. LOVENOX [Concomitant]
     Active Substance: ENOXAPARIN SODIUM
  17. CABOMETYX [Suspect]
     Active Substance: CABOZANTINIB S-MALATE
     Dosage: 60 MG, QD
     Route: 048
     Dates: start: 20210409
  18. CLONIDINE. [Concomitant]
     Active Substance: CLONIDINE
  19. DIFLUCAN [Concomitant]
     Active Substance: FLUCONAZOLE
  20. ENOXAPARIN SODIUM. [Concomitant]
     Active Substance: ENOXAPARIN SODIUM
  21. FLUCONAZOLE. [Concomitant]
     Active Substance: FLUCONAZOLE
  22. OMEPRAZOLE. [Concomitant]
     Active Substance: OMEPRAZOLE
  23. BENADRYL [Concomitant]
     Active Substance: DIPHENHYDRAMINE HYDROCHLORIDE
  24. MESALAMINE. [Concomitant]
     Active Substance: MESALAMINE
  25. NYSTATIN. [Concomitant]
     Active Substance: NYSTATIN
  26. CABOMETYX [Suspect]
     Active Substance: CABOZANTINIB S-MALATE
     Dosage: 40 MG, QD
     Route: 048
     Dates: start: 20210114
  27. ATIVAN [Concomitant]
     Active Substance: LORAZEPAM
  28. FUROSEMIDE. [Concomitant]
     Active Substance: FUROSEMIDE
  29. LISINOPRIL. [Concomitant]
     Active Substance: LISINOPRIL
  30. COLACE [Concomitant]
     Active Substance: DOCUSATE SODIUM
  31. GABAPENTIN. [Concomitant]
     Active Substance: GABAPENTIN
  32. KEPPRA [Concomitant]
     Active Substance: LEVETIRACETAM
  33. VIMPAT [Concomitant]
     Active Substance: LACOSAMIDE
  34. LEVETIRACETAM. [Concomitant]
     Active Substance: LEVETIRACETAM
  35. TYLENOL EXTRA STRENGTH [Concomitant]
     Active Substance: ACETAMINOPHEN
  36. CARBAMAZEPINE. [Concomitant]
     Active Substance: CARBAMAZEPINE
  37. LACOSAMIDE. [Concomitant]
     Active Substance: LACOSAMIDE
  38. SODIUM CHLORIDE. [Concomitant]
     Active Substance: SODIUM CHLORIDE
  39. CALCIUM [Concomitant]
     Active Substance: CALCIUM
  40. FLUZONE QUADRIVALENT NOS [Concomitant]
     Active Substance: INFLUENZA A VIRUS A/CALIFORNIA/7/2009 X-179A (H1N1) ANTIGEN (FORMALDEHYDE INACTIVATED)\INFLUENZA A VIRUS A/TEXAS/50/2012 X-223A (H3N2) ANTIGEN (FORMALDEHYDE INACTIVATED)\INFLUENZA B VIRUS B/BRISBANE/60/2008 ANTIGEN (FORMALDEHYDE INACTIVATED)\INFLUENZA B VIRUS B/MASSACHUSETTS/2/2012 ANTIGEN (FORMALDE

REACTIONS (4)
  - Gait disturbance [Unknown]
  - Asthenia [Unknown]
  - Dyspnoea [Unknown]
  - Malignant neoplasm progression [Unknown]
